FAERS Safety Report 7711773-4 (Version None)
Quarter: 2011Q3

REPORT INFORMATION
  Report Type: 
  Country: None (occurrence: None)
  Receive Date: 20110826
  Receipt Date: 20110819
  Transmission Date: 20111222
  Serious: Yes (Other)
  Sender: FDA-Public Use
  Company Number: NL-ABBOTT-11P-114-0847871-00

PATIENT
  Sex: Female
  Weight: 46 kg

DRUGS (8)
  1. PANTOPRAZOLE [Concomitant]
     Indication: PROPHYLAXIS
  2. ISOSORBID MONONITRATE [Concomitant]
     Indication: PRODUCT USED FOR UNKNOWN INDICATION
     Route: 048
  3. PANTOPRAZOLE [Concomitant]
     Indication: GASTRIC DISORDER
     Route: 048
  4. FOLIC ACID [Concomitant]
     Indication: VITAMIN SUPPLEMENTATION
     Route: 048
     Dates: start: 20060101
  5. HUMIRA [Suspect]
     Indication: RHEUMATOID ARTHRITIS
     Route: 058
     Dates: start: 20071109
  6. ACETAMINOPHEN W/ CODEINE [Concomitant]
     Indication: MUSCULOSKELETAL PAIN
     Dosage: 500/10MG TABLET AS NECESSARY
  7. METHOTREXATE [Concomitant]
     Indication: RHEUMATOID ARTHRITIS
     Route: 048
     Dates: start: 20060101
  8. CARBASALATE CALCIUM [Concomitant]
     Indication: ANTICOAGULANT THERAPY
     Route: 048
     Dates: start: 19960101

REACTIONS (1)
  - HEART VALVE INCOMPETENCE [None]
